FAERS Safety Report 5694592-2 (Version None)
Quarter: 2008Q2

REPORT INFORMATION
  Report Type: 
  Country: None (occurrence: None)
  Receive Date: 20080404
  Receipt Date: 20080324
  Transmission Date: 20081010
  Serious: Yes (Other)
  Sender: FDA-Public Use
  Company Number: JP-ROCHE-555494

PATIENT
  Age: 37 Year
  Sex: Female

DRUGS (8)
  1. VESANOID [Suspect]
     Route: 048
     Dates: start: 20080222, end: 20080316
  2. FAMOTIDINE [Suspect]
     Indication: DRUG USE FOR UNKNOWN INDICATION
     Route: 065
  3. SELBEX [Suspect]
     Indication: DRUG USE FOR UNKNOWN INDICATION
     Dosage: FORM: ORAL FORMULATION (NOT OTHERWISE SPECIFIED)
     Route: 048
  4. BIOFERMIN [Suspect]
     Indication: DRUG USE FOR UNKNOWN INDICATION
     Dosage: FORM: ORAL FORMULATION (NOT OTHERWISE SPECIFIED)
     Route: 048
  5. BIOFERMIN [Suspect]
     Dosage: FORM: ORAL FORMULATION (NOT OTHERWISE SPECIFIED)
     Route: 048
  6. BIOFERMIN [Suspect]
     Dosage: FORM: ORAL FORMULATION (NOT OTHERWISE SPECIFIED)
     Route: 048
  7. POLYMYCIN B SULFATE [Suspect]
     Indication: DRUG USE FOR UNKNOWN INDICATION
     Route: 048
  8. MAGMITT [Suspect]
     Indication: DRUG USE FOR UNKNOWN INDICATION
     Route: 048

REACTIONS (4)
  - NEUTROPENIA [None]
  - PLATELET COUNT DECREASED [None]
  - RETINAL HAEMORRHAGE [None]
  - VASCULITIS [None]
